FAERS Safety Report 6872453-0 (Version None)
Quarter: 2010Q3

REPORT INFORMATION
  Report Type: 
  Country: None (occurrence: None)
  Receive Date: 20100723
  Receipt Date: 20080927
  Transmission Date: 20110219
  Serious: No
  Sender: FDA-Public Use
  Company Number: US-PFIZER INC-2008082726

PATIENT
  Sex: Female
  Weight: 94.8 kg

DRUGS (2)
  1. CHANTIX [Suspect]
     Indication: SMOKING CESSATION THERAPY
     Dates: start: 20080101, end: 20080926
  2. SYNTHROID [Concomitant]

REACTIONS (5)
  - CHEST DISCOMFORT [None]
  - DRUG DOSE OMISSION [None]
  - HEADACHE [None]
  - PAIN IN EXTREMITY [None]
  - PRURITUS [None]
